FAERS Safety Report 4315079-5 (Version None)
Quarter: 2004Q1

REPORT INFORMATION
  Report Type: 
  Country: None (occurrence: None)
  Receive Date: 20040310
  Receipt Date: 20040227
  Transmission Date: 20041129
  Serious: Yes (Hospitalization, Other)
  Sender: FDA-Public Use
  Company Number: PHBS2004JP02937

PATIENT
  Age: 69 Year
  Sex: Female

DRUGS (3)
  1. LAMISIL [Suspect]
     Indication: NAIL TINEA
     Dosage: 125 MG/D
     Route: 048
     Dates: start: 20030901, end: 20040201
  2. LOXONIN [Concomitant]
     Route: 048
     Dates: start: 20040120, end: 20040122
  3. ORACEF [Concomitant]
     Route: 048
     Dates: start: 20040120, end: 20040122

REACTIONS (6)
  - HAEMOGLOBIN DECREASED [None]
  - MALAISE [None]
  - NASOPHARYNGITIS [None]
  - RED BLOOD CELL COUNT DECREASED [None]
  - RETICULOCYTE COUNT DECREASED [None]
  - WHITE BLOOD CELL COUNT DECREASED [None]
